FAERS Safety Report 24549056 (Version 1)
Quarter: 2024Q4

REPORT INFORMATION
  Report Type: Spontaneous
  Country: FR (occurrence: FR)
  Receive Date: 20241025
  Receipt Date: 20241025
  Transmission Date: 20250115
  Serious: Yes (Life-Threatening)
  Sender: RANBAXY
  Company Number: FR-SUN PHARMACEUTICAL INDUSTRIES LTD-2024RR-474888

PATIENT
  Age: 17 Year
  Sex: Female

DRUGS (7)
  1. ACETAMINOPHEN [Suspect]
     Active Substance: ACETAMINOPHEN
     Indication: Infection
     Dosage: UNK
     Route: 065
     Dates: start: 202407, end: 202408
  2. LEVETIRACETAM [Suspect]
     Active Substance: LEVETIRACETAM
     Indication: Infection
     Dosage: UNK
     Route: 065
     Dates: start: 20240718, end: 20240802
  3. BACLOFEN [Suspect]
     Active Substance: BACLOFEN
     Indication: Infection
     Dosage: UNK
     Route: 065
     Dates: start: 20240729, end: 20240816
  4. OXACILLIN [Suspect]
     Active Substance: OXACILLIN SODIUM
     Indication: Infection
     Dosage: UNK
     Route: 065
     Dates: start: 20240730, end: 20240813
  5. PROPRANOLOL [Suspect]
     Active Substance: PROPRANOLOL HYDROCHLORIDE
     Indication: Infection
     Dosage: UNK
     Route: 065
     Dates: start: 20240722, end: 20240816
  6. CLINDAMYCIN [Suspect]
     Active Substance: CLINDAMYCIN
     Indication: Infection
     Dosage: UNK
     Route: 065
     Dates: start: 20240812, end: 20240819
  7. DAPTOMYCIN [Suspect]
     Active Substance: DAPTOMYCIN
     Indication: Infection
     Dosage: UNK
     Route: 065
     Dates: start: 20240812, end: 20240820

REACTIONS (1)
  - Toxic epidermal necrolysis [Not Recovered/Not Resolved]

NARRATIVE: CASE EVENT DATE: 20240813
